FAERS Safety Report 7757491-8 (Version None)
Quarter: 2011Q3

REPORT INFORMATION
  Report Type: 
  Country: None (occurrence: None)
  Receive Date: 20110916
  Receipt Date: 20110906
  Transmission Date: 20111222
  Serious: Yes (Hospitalization)
  Sender: FDA-Public Use
  Company Number: US-ABBOTT-11P-163-0730021-00

PATIENT
  Sex: Female

DRUGS (6)
  1. HUMIRA [Suspect]
  2. NUCYNTA [Concomitant]
     Indication: PAIN
     Dates: start: 20110503
  3. HUMIRA [Suspect]
     Indication: CROHN'S DISEASE
     Route: 058
     Dates: start: 20090528, end: 20090528
  4. HUMIRA [Suspect]
     Route: 058
  5. REMERON [Concomitant]
     Indication: DEPRESSION
  6. MERCAPTOPURINE [Concomitant]
     Indication: CROHN'S DISEASE
     Dates: start: 20040101

REACTIONS (1)
  - CONVULSION [None]
